FAERS Safety Report 8287030-7 (Version None)
Quarter: 2012Q2

REPORT INFORMATION
  Report Type: 
  Country: None (occurrence: None)
  Receive Date: 20120416
  Receipt Date: 20120402
  Transmission Date: 20120825
  Serious: Yes (Other)
  Sender: FDA-Public Use
  Company Number: US-ROCHE-1051110

PATIENT
  Sex: Male

DRUGS (3)
  1. PEGASYS [Suspect]
     Indication: HEPATITIS C
     Route: 058
     Dates: start: 20120320
  2. TELAPREVIR [Suspect]
     Indication: HEPATITIS C
     Dates: start: 20120320
  3. COPEGUS [Suspect]
     Indication: HEPATITIS C
     Dates: start: 20120320

REACTIONS (14)
  - PANIC ATTACK [None]
  - DRUG INEFFECTIVE [None]
  - LIQUID PRODUCT PHYSICAL ISSUE [None]
  - PRODUCT QUALITY ISSUE [None]
  - FATIGUE [None]
  - ASTHENIA [None]
  - DRUG ADMINISTRATION ERROR [None]
  - ACTIVITIES OF DAILY LIVING IMPAIRED [None]
  - INJECTION SITE PRURITUS [None]
  - HYPERSOMNIA [None]
  - ANGINA PECTORIS [None]
  - MEDICATION ERROR [None]
  - INJECTION SITE ERYTHEMA [None]
  - NAUSEA [None]
